FAERS Safety Report 6023691-0 (Version None)
Quarter: 2008Q4

REPORT INFORMATION
  Report Type: 
  Country: None (occurrence: None)
  Receive Date: 20081226
  Receipt Date: 20081226
  Transmission Date: 20090506
  Serious: Yes (Other)
  Sender: FDA-Public Use
  Company Number: None

PATIENT
  Sex: Female
  Weight: 63.5036 kg

DRUGS (1)
  1. LITHIUM CARBONATE [Suspect]
     Indication: BIPOLAR DISORDER
     Dosage: 600-900 MG DAILY PO
     Route: 048
     Dates: start: 20030601, end: 20080601

REACTIONS (13)
  - ABNORMAL DREAMS [None]
  - ASTHENIA [None]
  - COGNITIVE DISORDER [None]
  - ILL-DEFINED DISORDER [None]
  - JOB DISSATISFACTION [None]
  - JUDGEMENT IMPAIRED [None]
  - LETHARGY [None]
  - MENTAL IMPAIRMENT [None]
  - NERVOUS SYSTEM DISORDER [None]
  - NEUROLOGICAL DECOMPENSATION [None]
  - PARTNER STRESS [None]
  - VISUAL FIELD DEFECT [None]
  - WEIGHT INCREASED [None]
